FAERS Safety Report 9596253 (Version 1)
Quarter: 2013Q4

REPORT INFORMATION
  Report Type: Spontaneous
  Country: FR (occurrence: FR)
  Receive Date: 20131004
  Receipt Date: 20131004
  Transmission Date: 20140711
  Serious: Yes (Hospitalization, Other)
  Sender: FDA-Public Use
  Company Number: FR-PFIZER INC-2013283551

PATIENT
  Age: 42 Year
  Sex: Female

DRUGS (5)
  1. INIPOMP [Suspect]
     Dosage: 1 DF (40 MG), 1X/DAY
     Route: 048
  2. LUTENYL [Suspect]
     Indication: CONTRACEPTION
     Dosage: 1 DF, 1X/DAY
     Route: 065
  3. LEXOMIL [Suspect]
     Dosage: 1 DF, 2X/DAY
     Route: 065
  4. TERCIAN [Suspect]
     Dosage: 1 DF(25 MG), 1X/DAY
     Route: 048
  5. ANAFRANIL [Suspect]
     Dosage: 150 MG (2 DF), 1X/DAY
     Route: 048

REACTIONS (2)
  - Deep vein thrombosis [Recovered/Resolved]
  - Pulmonary embolism [Recovered/Resolved]
